FAERS Safety Report 8455161-4 (Version None)
Quarter: 2012Q2

REPORT INFORMATION
  Report Type: 
  Country: None (occurrence: None)
  Receive Date: 20120614
  Receipt Date: 20120601
  Transmission Date: 20120825
  Serious: Yes (Hospitalization, Other)
  Sender: FDA-Public Use
  Company Number: JPI-P-021384

PATIENT
  Age: 52 Year
  Sex: Male
  Weight: 92.5338 kg

DRUGS (20)
  1. XYREM [Suspect]
     Indication: NARCOLEPSY
     Dosage: ORAL ; 9 GM (4.5 GM,2 IN 1 D),ORAL
     Route: 048
     Dates: start: 20111129
  2. WARFARIN SODIUM [Concomitant]
  3. ALBUTEROL [Concomitant]
  4. HYDROCHLOROQUINE [Concomitant]
  5. ARFORMOTEROL TARTRATE [Concomitant]
  6. LORATADINE [Concomitant]
  7. OXYCODONE HCL [Concomitant]
  8. OXYCODONE HCL [Concomitant]
  9. GABAPENTIN [Concomitant]
  10. STOOL SOFTENER [Concomitant]
  11. LANSOPRAZOLE [Concomitant]
  12. FINASTERIDE [Concomitant]
  13. INSULIN GLARGINE RECOMBINANT [Concomitant]
  14. CALICUM + D [Concomitant]
  15. PREDNISONE TAB [Concomitant]
  16. AMPHETAMIN, DEXTROAMPHETAMINE MIXED SALTS [Concomitant]
  17. FLUTICASONE AND SALMETEROL [Concomitant]
  18. INSULIN ASPART [Concomitant]
  19. CENTRUM B 100 [Concomitant]
  20. DEXTROAMPEHTAMINE AND AMPHETAMINE [Concomitant]

REACTIONS (4)
  - SOMNOLENCE [None]
  - FALL [None]
  - SLEEP APNOEA SYNDROME [None]
  - UPPER LIMB FRACTURE [None]
